FAERS Safety Report 12624794 (Version 4)
Quarter: 2017Q1

REPORT INFORMATION
  Report Type: Report from Study
  Country: BR (occurrence: BR)
  Receive Date: 20160805
  Receipt Date: 20170321
  Transmission Date: 20170428
  Serious: Yes (Other)
  Sender: FDA-Public Use
  Company Number: PHHY2016BR105866

PATIENT
  Sex: Female
  Weight: 57 kg

DRUGS (1)
  1. EXJADE [Suspect]
     Active Substance: DEFERASIROX
     Indication: SICKLE CELL ANAEMIA
     Dosage: 500 MG, QD (ONCE DAILY)
     Route: 048

REACTIONS (6)
  - Sickle cell anaemia [Unknown]
  - Disease progression [Unknown]
  - Plasma protein metabolism disorder [Unknown]
  - Asthenia [Unknown]
  - Protein total decreased [Unknown]
  - Atrophy [Unknown]
